FAERS Safety Report 6181818-4 (Version None)
Quarter: 2009Q2

REPORT INFORMATION
  Report Type: 
  Country: None (occurrence: None)
  Receive Date: 20090506
  Receipt Date: 20090428
  Transmission Date: 20091009
  Serious: Yes (Hospitalization)
  Sender: FDA-Public Use
  Company Number: PHEH2009US01498

PATIENT
  Age: 54 Year
  Sex: Female

DRUGS (1)
  1. RECLAST [Suspect]
     Dosage: 5 MG, ONCE/SINGLE

REACTIONS (2)
  - BONE PAIN [None]
  - JOINT SWELLING [None]
